FAERS Safety Report 6448459-2 (Version None)
Quarter: 2009Q4

REPORT INFORMATION
  Report Type: 
  Country: None (occurrence: None)
  Receive Date: 20091119
  Receipt Date: 20091119
  Transmission Date: 20100525
  Serious: Yes (Hospitalization)
  Sender: FDA-Public Use
  Company Number: None

PATIENT
  Sex: Female
  Weight: 50.8029 kg

DRUGS (6)
  1. TARCEVA [Suspect]
     Indication: NON-SMALL CELL LUNG CANCER
     Dosage: 150 MG, DAILY, ORAL
     Route: 048
     Dates: start: 20090910
  2. MEGESTEROL [Concomitant]
  3. DILTIAZEM [Concomitant]
  4. PRILOSEC [Concomitant]
  5. PEPCID [Concomitant]
  6. COMPAZINE [Concomitant]

REACTIONS (3)
  - DRUG DOSE OMISSION [None]
  - HYPONATRAEMIA [None]
  - INTESTINAL OBSTRUCTION [None]
